FAERS Safety Report 13974851 (Version 2)
Quarter: 2017Q4

REPORT INFORMATION
  Report Type: Spontaneous
  Country: US (occurrence: US)
  Receive Date: 20170915
  Receipt Date: 20171215
  Transmission Date: 20180321
  Serious: No
  Sender: FDA-Public Use
  Company Number: US-BRAEBURN PHARMACEUTICALS, INC.-2017BBN00058

PATIENT
  Age: 29 Year
  Sex: Female

DRUGS (1)
  1. PROBUPHINE [Suspect]
     Active Substance: BUPRENORPHINE HYDROCHLORIDE
     Indication: DRUG USE DISORDER
     Dosage: 4 DOSAGE UNITS, ONCE IN THE RIGHT INNER UPPER ARM
     Dates: start: 201706

REACTIONS (5)
  - Implant site irritation [Recovering/Resolving]
  - Injury [Recovering/Resolving]
  - Implant site erythema [Recovering/Resolving]
  - Implant site inflammation [Recovering/Resolving]
  - Implant site pruritus [Recovering/Resolving]

NARRATIVE: CASE EVENT DATE: 201708
